FAERS Safety Report 17469395 (Version 2)
Quarter: 2021Q3

REPORT INFORMATION
  Report Type: Spontaneous
  Country: JP (occurrence: JP)
  Receive Date: 20200227
  Receipt Date: 20210818
  Transmission Date: 20211014
  Serious: Yes (Other)
  Sender: FDA-Public Use
  Company Number: JP-GILEAD-2020-0452009

PATIENT
  Sex: Female

DRUGS (1)
  1. VEMLIDY [Suspect]
     Active Substance: TENOFOVIR ALAFENAMIDE FUMARATE
     Indication: CHRONIC HEPATITIS B
     Dosage: 25 MG, QD
     Route: 048

REACTIONS (1)
  - Rheumatoid arthritis [Unknown]
